FAERS Safety Report 4421770-2 (Version None)
Quarter: 2004Q3

REPORT INFORMATION
  Report Type: 
  Country: None (occurrence: None)
  Receive Date: 20040809
  Receipt Date: 20040809
  Transmission Date: 20050211
  Serious: Yes (Other)
  Sender: FDA-Public Use
  Company Number: None

PATIENT
  Age: 72 Year
  Sex: Male
  Weight: 83.5 kg

DRUGS (2)
  1. WARFARIN SODIUM [Suspect]
     Indication: AORTIC VALVE REPLACEMENT
  2. WARFARIN SODIUM [Suspect]
     Indication: ATRIAL FIBRILLATION

REACTIONS (1)
  - SUBDURAL HAEMATOMA [None]
